FAERS Safety Report 20382616 (Version 5)
Quarter: 2024Q2

REPORT INFORMATION
  Report Type: Spontaneous
  Country: US (occurrence: US)
  Receive Date: 20220127
  Receipt Date: 20240528
  Transmission Date: 20240716
  Serious: Yes (Other)
  Sender: FDA-Public Use
  Company Number: US-PFIZER INC-202200119926

PATIENT
  Age: 23 Month
  Sex: Female

DRUGS (4)
  1. SIROLIMUS [Suspect]
     Active Substance: SIROLIMUS
     Indication: Heart transplant rejection
     Dosage: UNK
  2. TACROLIMUS [Suspect]
     Active Substance: TACROLIMUS
     Indication: Heart transplant rejection
     Dosage: 4.0-10.0 NG/ML
  3. MYCOPHENOLATE MOFETIL [Concomitant]
     Active Substance: MYCOPHENOLATE MOFETIL
     Indication: Heart transplant rejection
     Dosage: UNK
  4. PREDNISOLONE [Concomitant]
     Active Substance: PREDNISOLONE
     Indication: Heart transplant rejection
     Dosage: UNK

REACTIONS (3)
  - Pneumocystis jirovecii pneumonia [Recovering/Resolving]
  - Off label use [Unknown]
  - Off label use [Unknown]
